FAERS Safety Report 22905702 (Version 4)
Quarter: 2024Q3

REPORT INFORMATION
  Report Type: Spontaneous
  Country: US (occurrence: US)
  Receive Date: 20230905
  Receipt Date: 20240712
  Transmission Date: 20241017
  Serious: Yes (Other)
  Sender: UCB
  Company Number: US-UCBSA-2023043078

PATIENT
  Age: 74 Year
  Sex: Male

DRUGS (1)
  1. CIMZIA [Suspect]
     Active Substance: CERTOLIZUMAB PEGOL
     Indication: Crohn^s disease
     Dosage: 400 MILLIGRAM, EV 4 WEEKS
     Route: 058
     Dates: start: 201801

REACTIONS (3)
  - Crohn^s disease [Recovered/Resolved]
  - Loss of personal independence in daily activities [Unknown]
  - Asthenia [Unknown]

NARRATIVE: CASE EVENT DATE: 20231117
